FAERS Safety Report 14634151 (Version 3)
Quarter: 2018Q3

REPORT INFORMATION
  Report Type: Spontaneous
  Country: JP (occurrence: JP)
  Receive Date: 20180314
  Receipt Date: 20180810
  Transmission Date: 20181010
  Serious: Yes (Other)
  Sender: FDA-Public Use
  Company Number: JP-ROCHE-2086168

PATIENT
  Age: 57 Year
  Sex: Female
  Weight: 53 kg

DRUGS (5)
  1. FLUOROURACIL. [Concomitant]
     Active Substance: FLUOROURACIL
     Indication: COLON CANCER
     Dosage: DOSAGE IS UNCERTAIN.
     Route: 040
  2. AVASTIN [Suspect]
     Active Substance: BEVACIZUMAB
     Indication: COLON CANCER
     Dosage: DOSAGE IS UNCERTAIN.
     Route: 041
     Dates: start: 20111126, end: 20180220
  3. CALCIUM LEVOFOLINATE [Concomitant]
     Active Substance: LEVOLEUCOVORIN CALCIUM
     Indication: COLON CANCER
     Dosage: DOSAGE IS UNCERTAIN.
     Route: 041
  4. OXALIPLATIN. [Concomitant]
     Active Substance: OXALIPLATIN
     Indication: COLON CANCER
     Dosage: DOSAGE IS UNCERTAIN.
     Route: 041
  5. FLUOROURACIL. [Concomitant]
     Active Substance: FLUOROURACIL
     Dosage: DOSAGE IS UNCERTAIN.
     Route: 041

REACTIONS (5)
  - Hepatic function abnormal [Unknown]
  - Neuropathy peripheral [Unknown]
  - Tumour invasion [Recovering/Resolving]
  - Tumour necrosis [Recovering/Resolving]
  - Pulmonary cavitation [Recovered/Resolved]

NARRATIVE: CASE EVENT DATE: 20120507
